FAERS Safety Report 22067670 (Version 1)
Quarter: 2023Q1

REPORT INFORMATION
  Report Type: Spontaneous
  Country: GB (occurrence: GB)
  Receive Date: 20230307
  Receipt Date: 20230307
  Transmission Date: 20230418
  Serious: Yes (Other)
  Sender: FDA-Public Use
  Company Number: GB-MHRA-MED-202302211203540190-HQWCR

PATIENT
  Age: 59 Year
  Sex: Female

DRUGS (3)
  1. CLARITHROMYCIN [Suspect]
     Active Substance: CLARITHROMYCIN
     Indication: Dental operation
     Dosage: 400 MILLIGRAM, 3 TIMES A DAY((8HOURS APART) WITH FOOD ; ;)
     Route: 065
     Dates: start: 20230214, end: 20230221
  2. METRONIDAZOLE [Suspect]
     Active Substance: METRONIDAZOLE
     Indication: Dental operation
     Dosage: 400 MILLIGRAM, 3 TIMES A DAY((8HOURS APART) WITH FOOD ; ;)
     Route: 065
     Dates: start: 20230214, end: 20230221
  3. LANSOPRAZOLE [Suspect]
     Active Substance: LANSOPRAZOLE
     Indication: Dental operation
     Dosage: 400 MILLIGRAM, 3 TIMES A DAY(8HOURS APART) WITH FOOD ; ;)
     Route: 065
     Dates: start: 20230214, end: 20230221

REACTIONS (6)
  - Rash pruritic [Not Recovered/Not Resolved]
  - Rash papular [Not Recovered/Not Resolved]
  - Fatigue [Unknown]
  - Headache [Unknown]
  - Tinnitus [Unknown]
  - Depressed mood [Unknown]
